FAERS Safety Report 7360621-3 (Version None)
Quarter: 2011Q1

REPORT INFORMATION
  Report Type: 
  Country: None (occurrence: None)
  Receive Date: 20110318
  Receipt Date: 20101005
  Transmission Date: 20110831
  Serious: Yes (Hospitalization, Other)
  Sender: FDA-Public Use
  Company Number: US-BAYER-201011603NA

PATIENT
  Sex: Female
  Weight: 104.31 kg

DRUGS (5)
  1. ALBUTEROL [Concomitant]
     Indication: ASTHMA
  2. YAZ [Suspect]
     Indication: POLYCYSTIC OVARIES
  3. YAZ [Suspect]
     Indication: ORAL CONTRACEPTION
     Dosage: 1 DF (DAILY DOSE), QD, ORAL
     Route: 048
     Dates: start: 20060101, end: 20090101
  4. SYNTHROID [Concomitant]
     Indication: HYPOTHYROIDISM
  5. YASMIN [Suspect]
     Indication: ORAL CONTRACEPTION
     Dosage: 1 DF (DAILY DOSE), QD, ORAL
     Route: 048
     Dates: start: 20030101

REACTIONS (9)
  - VOMITING [None]
  - CHOLECYSTITIS [None]
  - GASTROINTESTINAL DISORDER [None]
  - GALLBLADDER INJURY [None]
  - BILIARY COLIC [None]
  - DIARRHOEA [None]
  - HIATUS HERNIA [None]
  - GALLBLADDER CHOLESTEROLOSIS [None]
  - NAUSEA [None]
